FAERS Safety Report 9254116 (Version 2)
Quarter: 2013Q2

REPORT INFORMATION
  Report Type: Spontaneous
  Country: US (occurrence: None)
  Receive Date: 20130422
  Receipt Date: 20130430
  Transmission Date: 20140414
  Serious: Yes (Hospitalization)
  Sender: FDA-Public Use
  Company Number: 2013PROUSA02719

PATIENT
  Age: 83 Year
  Sex: Male
  Weight: 99.8 kg

DRUGS (3)
  1. PROVENGE (SIPULEUCEL-T) SUSPENSION, 250 ML [Suspect]
     Dosage: 250 ML, SINGLE, INTRAVENOUS
     Route: 042
     Dates: start: 20130307, end: 20130307
  2. PLAVIX [Suspect]
  3. ASPIRIN (ACETYLSALICYLIC ACID) [Suspect]

REACTIONS (5)
  - Urinary retention [None]
  - Joint swelling [None]
  - Dyspnoea [None]
  - Renal failure acute [None]
  - Post procedural haemorrhage [None]
